FAERS Safety Report 19698189 (Version 1)
Quarter: 2021Q3

REPORT INFORMATION
  Report Type: Report from Study
  Country: None (occurrence: CO)
  Receive Date: 20210812
  Receipt Date: 20210812
  Transmission Date: 20211014
  Serious: Yes (Hospitalization, Other)
  Sender: FDA-Public Use
  Company Number: CO-ABBVIE-21P-036-4032474-00

PATIENT
  Age: 2 Month
  Sex: Female
  Weight: 3.1 kg

DRUGS (1)
  1. SYNAGIS [Suspect]
     Active Substance: PALIVIZUMAB
     Indication: RESPIRATORY DISORDER
     Dosage: 100.0 MG/ML
     Route: 030
     Dates: start: 20210628

REACTIONS (3)
  - Vomiting [Not Recovered/Not Resolved]
  - Diarrhoea [Not Recovered/Not Resolved]
  - Dairy intolerance [Unknown]

NARRATIVE: CASE EVENT DATE: 20210720
